FAERS Safety Report 15742415 (Version 1)
Quarter: 2018Q4

REPORT INFORMATION
  Report Type: Report from Study
  Country: KW (occurrence: KW)
  Receive Date: 20181219
  Receipt Date: 20181219
  Transmission Date: 20190205
  Serious: Yes (Death, Other)
  Sender: FDA-Public Use
  Company Number: PHHY2018KW163497

PATIENT
  Age: 57 Year
  Sex: Female

DRUGS (3)
  1. FULVESTRANT. [Concomitant]
     Active Substance: FULVESTRANT
     Indication: BREAST CANCER METASTATIC
     Route: 065
  2. KISQALI [Suspect]
     Active Substance: RIBOCICLIB
     Dosage: 400 MG, UNK
     Route: 065
     Dates: start: 20181031
  3. KISQALI [Suspect]
     Active Substance: RIBOCICLIB
     Indication: BREAST CANCER METASTATIC
     Dosage: 600 MG, QD
     Route: 048
     Dates: start: 20181001

REACTIONS (14)
  - Death [Fatal]
  - Palpitations [Unknown]
  - Decreased appetite [Unknown]
  - Fatigue [Unknown]
  - Malignant neoplasm progression [Unknown]
  - Mood altered [Not Recovered/Not Resolved]
  - Muscle spasms [Unknown]
  - Breast cancer metastatic [Unknown]
  - Abdominal distension [Unknown]
  - Insomnia [Unknown]
  - Nausea [Unknown]
  - Body temperature increased [Unknown]
  - Peripheral swelling [Unknown]
  - Pain [Unknown]

NARRATIVE: CASE EVENT DATE: 201810
